FAERS Safety Report 6063793-6 (Version None)
Quarter: 2009Q1

REPORT INFORMATION
  Report Type: 
  Country: None (occurrence: None)
  Receive Date: 20090204
  Receipt Date: 20090126
  Transmission Date: 20090719
  Serious: Yes (Hospitalization)
  Sender: FDA-Public Use
  Company Number: US-JNJFOC-20090106787

PATIENT
  Sex: Male
  Weight: 102.06 kg

DRUGS (4)
  1. DURAGESIC-100 [Suspect]
     Indication: BACK PAIN
     Dosage: FOUR 100 UG/HR PATCHES
     Route: 062
  2. CLONAZEPAM [Concomitant]
     Indication: CONVULSION
     Dosage: 0.5 MG, 4 TABLETS.
     Route: 048
  3. TOPAMAX [Concomitant]
     Indication: ANXIETY
     Dosage: 1 AT NIGHT
     Route: 048
  4. DILAUDID [Concomitant]
     Indication: BREAKTHROUGH PAIN
     Route: 048

REACTIONS (2)
  - BACK INJURY [None]
  - BLOOD CHOLESTEROL INCREASED [None]
